FAERS Safety Report 8130530-0 (Version None)
Quarter: 2012Q1

REPORT INFORMATION
  Report Type: 
  Country: None (occurrence: None)
  Receive Date: 20120210
  Receipt Date: 20120202
  Transmission Date: 20120608
  Serious: Yes (Hospitalization)
  Sender: FDA-Public Use
  Company Number: US-ASTRAZENECA-2012SE07704

PATIENT
  Age: 79 Year
  Sex: Male

DRUGS (2)
  1. PLAVIX [Suspect]
  2. NEXIUM [Suspect]
     Route: 048

REACTIONS (4)
  - FALL [None]
  - ADVERSE EVENT [None]
  - SALIVARY HYPERSECRETION [None]
  - DYSPHAGIA [None]
